FAERS Safety Report 8924656 (Version 1)
Quarter: 2012Q4

REPORT INFORMATION
  Report Type: 
  Country: US (occurrence: US)
  Receive Date: 20121126
  Receipt Date: 20121126
  Transmission Date: 20130627
  Serious: Yes (Other)
  Sender: FDA-Public Use
  Company Number: US-PFIZER INC-2012291647

PATIENT
  Age: 70 Year
  Sex: Female

DRUGS (2)
  1. ZYVOX [Suspect]
     Indication: METHICILLIN-RESISTANT STAPHYLOCOCCAL AUREUS INFECTION
     Dosage: UNK
     Dates: start: 2012
  2. ZYVOX [Suspect]
     Indication: PNEUMONIA

REACTIONS (1)
  - Optic neuropathy [Recovered/Resolved]
